FAERS Safety Report 7943681-8 (Version None)
Quarter: 2011Q4

REPORT INFORMATION
  Report Type: 
  Country: None (occurrence: None)
  Receive Date: 20111128
  Receipt Date: 20111121
  Transmission Date: 20120403
  Serious: Yes (Hospitalization, Other)
  Sender: FDA-Public Use
  Company Number: US-US-EMD SERONO, INC.-7097597

PATIENT

DRUGS (8)
  1. METHADONE HYDROCHLORIDE [Concomitant]
  2. REBIF [Suspect]
     Indication: MULTIPLE SCLEROSIS
     Route: 058
     Dates: start: 20090315
  3. VITAMIN D [Concomitant]
  4. ZANAFLEX [Concomitant]
     Indication: DYSTONIA
  5. METHADONE HYDROCHLORIDE [Concomitant]
     Indication: BREAKTHROUGH PAIN
     Dates: end: 20080101
  6. HYDROCODONE [Concomitant]
     Indication: BREAKTHROUGH PAIN
  7. VALIUM [Concomitant]
     Indication: DYSTONIA
  8. FENTANYL-100 [Concomitant]
     Indication: BREAKTHROUGH PAIN

REACTIONS (8)
  - FALL [None]
  - RASH [None]
  - NEUROLOGICAL SYMPTOM [None]
  - WRIST FRACTURE [None]
  - VISUAL FIELD DEFECT [None]
  - VISION BLURRED [None]
  - TENOSYNOVITIS [None]
  - ANTIBODY TEST POSITIVE [None]
